FAERS Safety Report 25156941 (Version 2)
Quarter: 2025Q3

REPORT INFORMATION
  Report Type: Spontaneous
  Country: KZ (occurrence: KZ)
  Receive Date: 20250403
  Receipt Date: 20250802
  Transmission Date: 20251020
  Serious: Yes (Other)
  Sender: ALEXION PHARMACEUTICALS
  Company Number: KZ-ASTRAZENECA-202503EAF025984KZ

PATIENT

DRUGS (2)
  1. TEZSPIRE [Suspect]
     Active Substance: TEZEPELUMAB-EKKO
     Route: 065
  2. TEZSPIRE [Suspect]
     Active Substance: TEZEPELUMAB-EKKO

REACTIONS (7)
  - Asphyxia [Unknown]
  - Productive cough [Unknown]
  - Dyspnoea [Unknown]
  - Nasal congestion [Unknown]
  - Pruritus [Unknown]
  - Rash [Unknown]
  - Erythema [Unknown]

NARRATIVE: CASE EVENT DATE: 20250321
